FAERS Safety Report 8206284-6 (Version None)
Quarter: 2012Q1

REPORT INFORMATION
  Report Type: 
  Country: None (occurrence: None)
  Receive Date: 20120313
  Receipt Date: 20120305
  Transmission Date: 20120608
  Serious: Yes (Other)
  Sender: FDA-Public Use
  Company Number: PHHY2012BR020096

PATIENT
  Sex: Female
  Weight: 134 kg

DRUGS (2)
  1. ALBUTEROL [Concomitant]
     Indication: ASTHMA
  2. FORMOTEROL FUMARATE [Suspect]
     Indication: ASTHMA
     Dosage: 12/400 MCG, 2 DF

REACTIONS (2)
  - LOWER RESPIRATORY TRACT INFECTION [None]
  - NON-CARDIAC CHEST PAIN [None]
